FAERS Safety Report 4290047-0 (Version None)
Quarter: 2004Q1

REPORT INFORMATION
  Report Type: 
  Country: None (occurrence: None)
  Receive Date: 20040209
  Receipt Date: 20040130
  Transmission Date: 20041129
  Serious: Yes (Hospitalization)
  Sender: FDA-Public Use
  Company Number: US062441

PATIENT
  Age: 81 Year
  Sex: Female

DRUGS (14)
  1. KINERET [Suspect]
     Indication: RHEUMATOID ARTHRITIS
     Dosage: 100 MG, DAILY, SC
     Route: 058
     Dates: start: 20020211
  2. CIPROFLOXACIN HYDROCHLORIDE [Concomitant]
  3. PREDNISONE [Concomitant]
  4. MONTELUKAST [Concomitant]
  5. CLOPIDOGREL BISULFATE [Concomitant]
  6. SALBUTAMOL [Concomitant]
  7. IPRATROPIUM BROMIDE [Concomitant]
  8. CARDIZEM CD [Concomitant]
  9. TRAMADOL HYDROCHLORIDE W/ACETAMINOPHEN [Concomitant]
  10. DOXAZOSIN MESYLATE [Concomitant]
  11. DICYCLOMINE HCL [Concomitant]
  12. LEVOTHYROXINE SODIUM [Concomitant]
  13. FOLIC ACID [Concomitant]
  14. PROPAFENONE HYDROCHLORIDE [Concomitant]

REACTIONS (5)
  - ATRIAL FIBRILLATION [None]
  - BRONCHITIS ACUTE [None]
  - ESCHERICHIA INFECTION [None]
  - SUPRAVENTRICULAR TACHYCARDIA [None]
  - UROSEPSIS [None]
